FAERS Safety Report 15397488 (Version 1)
Quarter: 2018Q3

REPORT INFORMATION
  Report Type: Spontaneous
  Country: US (occurrence: US)
  Receive Date: 20180918
  Receipt Date: 20180918
  Transmission Date: 20181010
  Serious: No
  Sender: FDA-Public Use
  Company Number: US-MYLANLABS-2018M1065330

PATIENT
  Sex: Female

DRUGS (1)
  1. ESTRADIOL. [Suspect]
     Active Substance: ESTRADIOL
     Indication: PRODUCT USED FOR UNKNOWN INDICATION
     Dosage: UNK, QW
     Route: 062

REACTIONS (6)
  - Product adhesion issue [Unknown]
  - Product shape issue [Unknown]
  - Application site erythema [Recovered/Resolved]
  - Application site irritation [Unknown]
  - Medication residue present [Unknown]
  - Drug ineffective [Unknown]
